FAERS Safety Report 4468970-3 (Version None)
Quarter: 2004Q4

REPORT INFORMATION
  Report Type: 
  Country: None (occurrence: None)
  Receive Date: 20041005
  Receipt Date: 20040511
  Transmission Date: 20050328
  Serious: Yes (Hospitalization)
  Sender: FDA-Public Use
  Company Number: ENT 2004-0096

PATIENT
  Age: 81 Year
  Sex: Female

DRUGS (6)
  1. COMTESS (ENTACAPONE) [Suspect]
     Indication: PARKINSON'S DISEASE
     Dosage: 800 MG
     Route: 048
     Dates: start: 20030101, end: 20040428
  2. NOXEUM [Concomitant]
  3. VITAMIN B-12 [Concomitant]
  4. FRAXIPARIN [Concomitant]
  5. AMANTADINE HCL [Suspect]
     Indication: PARKINSON'S DISEASE
     Route: 042
     Dates: start: 20040417, end: 20040427
  6. NACOM 200 [Suspect]
     Indication: PARKINSON'S DISEASE
     Dosage: 800MG
     Route: 048
     Dates: start: 20020101

REACTIONS (6)
  - AKINESIA [None]
  - BLOOD CREATINE PHOSPHOKINASE INCREASED [None]
  - HALLUCINATION [None]
  - MUSCLE RIGIDITY [None]
  - MYOCLONUS [None]
  - RESTLESSNESS [None]
